FAERS Safety Report 17194334 (Version 3)
Quarter: 2020Q3

REPORT INFORMATION
  Report Type: Spontaneous
  Country: US (occurrence: US)
  Receive Date: 20191224
  Receipt Date: 20200717
  Transmission Date: 20201102
  Serious: Yes (Hospitalization)
  Sender: FDA-Public Use
  Company Number: US-ASTRAZENECA-2019SF84362

PATIENT
  Age: 19018 Day
  Sex: Male
  Weight: 117 kg

DRUGS (105)
  1. FARXIGA [Suspect]
     Active Substance: DAPAGLIFLOZIN PROPANEDIOL
     Indication: TYPE 2 DIABETES MELLITUS
     Route: 048
     Dates: start: 20170620, end: 201712
  2. FARXIGA [Suspect]
     Active Substance: DAPAGLIFLOZIN PROPANEDIOL
     Indication: WEIGHT DECREASED
     Dosage: 5.0MG UNKNOWN
     Route: 048
     Dates: start: 20170620
  3. FARXIGA [Suspect]
     Active Substance: DAPAGLIFLOZIN PROPANEDIOL
     Indication: TYPE 2 DIABETES MELLITUS
     Dosage: 5.0MG UNKNOWN
     Route: 048
     Dates: start: 20170827
  4. SEVOFLURANE. [Concomitant]
     Active Substance: SEVOFLURANE
  5. HEPARIN [Concomitant]
     Active Substance: HEPARIN SODIUM
  6. BENZONATATE. [Concomitant]
     Active Substance: BENZONATATE
  7. HUMALOG [Concomitant]
     Active Substance: INSULIN LISPRO
  8. BYSTOLIC [Concomitant]
     Active Substance: NEBIVOLOL HYDROCHLORIDE
  9. MUPIROCIN. [Concomitant]
     Active Substance: MUPIROCIN
  10. PROTHROMBIN [Concomitant]
     Active Substance: PROTHROMBIN
  11. MAGNESIUM [Concomitant]
     Active Substance: MAGNESIUM
  12. FARXIGA [Suspect]
     Active Substance: DAPAGLIFLOZIN PROPANEDIOL
     Indication: WEIGHT DECREASED
     Dosage: 5.0MG UNKNOWN
     Route: 048
     Dates: start: 20170927
  13. FISH OIL [Concomitant]
     Active Substance: FISH OIL
     Indication: CARDIAC DISORDER
     Dates: start: 20171207
  14. NORCO [Concomitant]
     Active Substance: ACETAMINOPHEN\HYDROCODONE BITARTRATE
     Indication: PAIN
  15. NACL [Concomitant]
     Active Substance: SODIUM CHLORIDE
  16. VIAGRA [Concomitant]
     Active Substance: SILDENAFIL CITRATE
  17. INVOKANA [Concomitant]
     Active Substance: CANAGLIFLOZIN
  18. SILDENAFIL. [Concomitant]
     Active Substance: SILDENAFIL
  19. FLAGYL [Concomitant]
     Active Substance: METRONIDAZOLE\METRONIDAZOLE HYDROCHLORIDE
  20. ROBINUL [Concomitant]
     Active Substance: GLYCOPYRROLATE
  21. SUBLIMAZE [Concomitant]
     Active Substance: FENTANYL CITRATE
  22. MAXIPIME [Concomitant]
     Active Substance: CEFEPIME HYDROCHLORIDE
  23. FARXIGA [Suspect]
     Active Substance: DAPAGLIFLOZIN PROPANEDIOL
     Indication: WEIGHT DECREASED
     Route: 048
     Dates: start: 20170620, end: 201712
  24. FARXIGA [Suspect]
     Active Substance: DAPAGLIFLOZIN PROPANEDIOL
     Indication: BLOOD PRESSURE DECREASED
     Dosage: 5.0MG UNKNOWN
     Route: 048
     Dates: start: 20170827
  25. FARXIGA [Suspect]
     Active Substance: DAPAGLIFLOZIN PROPANEDIOL
     Indication: BLOOD PRESSURE DECREASED
     Dosage: UNKNOWN
     Route: 048
     Dates: start: 20171207
  26. MIRALAX [Concomitant]
     Active Substance: POLYETHYLENE GLYCOL 3350
  27. PERCOCET [Concomitant]
     Active Substance: ACETAMINOPHEN\OXYCODONE HYDROCHLORIDE
  28. CEFAZOLIN [Concomitant]
     Active Substance: CEFAZOLIN
  29. DEXAMETHASONE. [Concomitant]
     Active Substance: DEXAMETHASONE
  30. CYCLOBENZAPRINE. [Concomitant]
     Active Substance: CYCLOBENZAPRINE
  31. AMOXICILLIN. [Concomitant]
     Active Substance: AMOXICILLIN
  32. PROMETHAZINE [Concomitant]
     Active Substance: PROMETHAZINE HYDROCHLORIDE
  33. GARAMYCIN [Concomitant]
     Active Substance: GENTAMICIN SULFATE
  34. TRADJENTA [Concomitant]
     Active Substance: LINAGLIPTIN
  35. ANCEF [Concomitant]
     Active Substance: CEFAZOLIN SODIUM
  36. FARXIGA [Suspect]
     Active Substance: DAPAGLIFLOZIN PROPANEDIOL
     Indication: TYPE 2 DIABETES MELLITUS
     Dosage: 5.0MG UNKNOWN
     Route: 048
     Dates: start: 20170620
  37. FARXIGA [Suspect]
     Active Substance: DAPAGLIFLOZIN PROPANEDIOL
     Indication: BLOOD PRESSURE DECREASED
     Dosage: 5.0MG UNKNOWN
     Route: 048
     Dates: start: 20170620
  38. FARXIGA [Suspect]
     Active Substance: DAPAGLIFLOZIN PROPANEDIOL
     Indication: TYPE 2 DIABETES MELLITUS
     Dosage: 5.0MG UNKNOWN
     Route: 048
     Dates: start: 20170927
  39. FARXIGA [Suspect]
     Active Substance: DAPAGLIFLOZIN PROPANEDIOL
     Indication: BLOOD PRESSURE DECREASED
     Dosage: 5.0MG UNKNOWN
     Route: 048
     Dates: start: 20170927
  40. FARXIGA [Suspect]
     Active Substance: DAPAGLIFLOZIN PROPANEDIOL
     Indication: BLOOD PRESSURE DECREASED
     Dosage: 5.0MG UNKNOWN
     Route: 048
     Dates: start: 20171126
  41. LORATADINE. [Concomitant]
     Active Substance: LORATADINE
     Indication: HYPERSENSITIVITY
     Dates: start: 20171207
  42. METFORMIN HCL [Concomitant]
     Active Substance: METFORMIN HYDROCHLORIDE
     Indication: DIABETES MELLITUS
     Dates: start: 20171207
  43. VITAMIN C [Concomitant]
     Active Substance: ASCORBIC ACID
     Indication: VITAMIN SUPPLEMENTATION
     Dates: start: 20171207
  44. LIDOCAINE. [Concomitant]
     Active Substance: LIDOCAINE
  45. CLONIDINE. [Concomitant]
     Active Substance: CLONIDINE
  46. NICODERM CQ [Concomitant]
     Active Substance: NICOTINE
  47. VOLTAREN [Concomitant]
     Active Substance: DICLOFENAC SODIUM
  48. NEOMYCIN?POLYMYXIN [Concomitant]
  49. ISOVUE [Concomitant]
     Active Substance: IOPAMIDOL
  50. POTASSIUM PHOSPHATE [Concomitant]
     Active Substance: POTASSIUM PHOSPHATE
  51. VITAMIN B12 [Concomitant]
     Active Substance: CYANOCOBALAMIN
  52. FARXIGA [Suspect]
     Active Substance: DAPAGLIFLOZIN PROPANEDIOL
     Indication: WEIGHT DECREASED
     Dosage: 5.0MG UNKNOWN
     Route: 048
     Dates: start: 20170827
  53. FENOFIBRATE. [Concomitant]
     Active Substance: FENOFIBRATE
  54. AMOX?CLAV [Concomitant]
     Active Substance: AMOXICILLIN\CLAVULANATE POTASSIUM
  55. AZITHROMYCIN ANHYDROUS. [Concomitant]
     Active Substance: AZITHROMYCIN ANHYDROUS
  56. CEPHALEXIN. [Concomitant]
     Active Substance: CEPHALEXIN
  57. TRIAMCINOLONE [Concomitant]
     Active Substance: TRIAMCINOLONE
  58. NAPROXEN. [Concomitant]
     Active Substance: NAPROXEN
  59. BREVIBLOC [Concomitant]
     Active Substance: ESMOLOL HYDROCHLORIDE
  60. ANTIPYRINE ?BENZOCAINE [Concomitant]
  61. JANUVIA [Concomitant]
     Active Substance: SITAGLIPTIN PHOSPHATE
  62. DOXYCYCLINE HYCLATE. [Concomitant]
     Active Substance: DOXYCYCLINE HYCLATE
  63. ADENOSINE. [Concomitant]
     Active Substance: ADENOSINE
  64. DIPRIVAN [Concomitant]
     Active Substance: PROPOFOL
  65. FARXIGA [Suspect]
     Active Substance: DAPAGLIFLOZIN PROPANEDIOL
     Indication: TYPE 2 DIABETES MELLITUS
     Dosage: 5.0MG UNKNOWN
     Route: 048
     Dates: start: 20171126
  66. LEVAQUIN [Concomitant]
     Active Substance: LEVOFLOXACIN
  67. METRONIDAZOLE. [Concomitant]
     Active Substance: METRONIDAZOLE
     Indication: ANTIBIOTIC THERAPY
     Dates: start: 20171207
  68. VITAMIN B12 [Concomitant]
     Active Substance: CYANOCOBALAMIN
     Indication: VITAMIN SUPPLEMENTATION
     Dates: start: 20171207
  69. METOCLOPRAMIDE. [Concomitant]
     Active Substance: METOCLOPRAMIDE
  70. PHENYLEPHRINE [Concomitant]
     Active Substance: PHENYLEPHRINE HYDROCHLORIDE
  71. FLUTICASONE. [Concomitant]
     Active Substance: FLUTICASONE
  72. CRESTOR [Concomitant]
     Active Substance: ROSUVASTATIN CALCIUM
  73. GLUCOPHAGE [Concomitant]
     Active Substance: METFORMIN HYDROCHLORIDE
  74. TYLENOL [Concomitant]
     Active Substance: ACETAMINOPHEN
  75. ZEMURON [Concomitant]
     Active Substance: ROCURONIUM BROMIDE
  76. FARXIGA [Suspect]
     Active Substance: DAPAGLIFLOZIN PROPANEDIOL
     Indication: BLOOD PRESSURE DECREASED
     Route: 048
     Dates: start: 20170620, end: 201712
  77. FARXIGA [Suspect]
     Active Substance: DAPAGLIFLOZIN PROPANEDIOL
     Indication: WEIGHT DECREASED
     Dosage: UNKNOWN
     Route: 048
     Dates: start: 20171207
  78. DICLOFENAC SODIUM. [Concomitant]
     Active Substance: DICLOFENAC SODIUM
     Indication: PAIN
     Dates: start: 20171207
  79. LORAZEPAM. [Concomitant]
     Active Substance: LORAZEPAM
     Indication: ANXIETY
     Dates: start: 20171207
  80. MIDAZOLAM. [Concomitant]
     Active Substance: MIDAZOLAM
  81. DILAUDID [Concomitant]
     Active Substance: HYDROMORPHONE HYDROCHLORIDE
  82. TORADOL [Concomitant]
     Active Substance: KETOROLAC TROMETHAMINE
  83. SIMVASTATIN. [Concomitant]
     Active Substance: SIMVASTATIN
  84. METHYLPREDNISOLONE. [Concomitant]
     Active Substance: METHYLPREDNISOLONE
  85. TRAMADOL. [Concomitant]
     Active Substance: TRAMADOL
  86. ZOSYN [Concomitant]
     Active Substance: PIPERACILLIN SODIUM\TAZOBACTAM SODIUM
  87. NASONEX [Concomitant]
     Active Substance: MOMETASONE FUROATE
  88. IBUPROFEN. [Concomitant]
     Active Substance: IBUPROFEN
  89. GEMFIBROZIL. [Concomitant]
     Active Substance: GEMFIBROZIL
  90. HYDROGEN PEROXIDE. [Concomitant]
     Active Substance: HYDROGEN PEROXIDE
  91. MARCAINE [Concomitant]
     Active Substance: BUPIVACAINE HYDROCHLORIDE
  92. XYLOCAINE/EPINEPHRINE [Concomitant]
  93. PROSTIGMINE [Concomitant]
  94. ALBUMINAR [Concomitant]
     Active Substance: ALBUMIN HUMAN
  95. TOPROL XL [Concomitant]
     Active Substance: METOPROLOL SUCCINATE
  96. FARXIGA [Suspect]
     Active Substance: DAPAGLIFLOZIN PROPANEDIOL
     Indication: WEIGHT DECREASED
     Dosage: 5.0MG UNKNOWN
     Route: 048
     Dates: start: 20171126
  97. FARXIGA [Suspect]
     Active Substance: DAPAGLIFLOZIN PROPANEDIOL
     Indication: TYPE 2 DIABETES MELLITUS
     Dosage: UNKNOWN
     Route: 048
     Dates: start: 20171207
  98. LISINOPRIL. [Concomitant]
     Active Substance: LISINOPRIL
     Indication: HYPERTENSION
     Dates: start: 20171207
  99. HYDROCHLOROTHIAZIDE. [Concomitant]
     Active Substance: HYDROCHLOROTHIAZIDE
  100. ONDANSETRON [Concomitant]
     Active Substance: ONDANSETRON
  101. SULFAMETHOXAZOLE [Concomitant]
     Active Substance: SULFAMETHOXAZOLE
  102. VANCOMYCIN [Concomitant]
     Active Substance: VANCOMYCIN
  103. NITROGLYCERIN. [Concomitant]
     Active Substance: NITROGLYCERIN
  104. LEXISCAN [Concomitant]
     Active Substance: REGADENOSON
  105. VERSED [Concomitant]
     Active Substance: MIDAZOLAM HYDROCHLORIDE

REACTIONS (10)
  - Gas gangrene [Unknown]
  - Scrotal swelling [Unknown]
  - Groin abscess [Unknown]
  - Cellulitis [Unknown]
  - Necrotising fasciitis [Unknown]
  - Testicular pain [Unknown]
  - Groin pain [Unknown]
  - Scrotal pain [Unknown]
  - Fournier^s gangrene [Unknown]
  - Scrotal cyst [Unknown]

NARRATIVE: CASE EVENT DATE: 20171201
